FAERS Safety Report 15623003 (Version 6)
Quarter: 2020Q3

REPORT INFORMATION
  Report Type: Report from Study
  Country: US (occurrence: US)
  Receive Date: 20181115
  Receipt Date: 20200702
  Transmission Date: 20201102
  Serious: Yes (Hospitalization, Disabling, Other)
  Sender: FDA-Public Use
  Company Number: US-ACTELION-A-US2018-181678

PATIENT
  Age: 68 Year
  Sex: Male

DRUGS (1)
  1. OPSUMIT [Suspect]
     Active Substance: MACITENTAN
     Indication: PULMONARY ARTERIAL HYPERTENSION
     Dosage: 10 MG, QD
     Route: 048
     Dates: start: 20151029

REACTIONS (15)
  - Amnesia [Not Recovered/Not Resolved]
  - Dyspnoea [Unknown]
  - Myalgia [Unknown]
  - Hypertension [Unknown]
  - Malaise [Unknown]
  - Dyspnoea exertional [Unknown]
  - Neoplasm malignant [Unknown]
  - Cardiac discomfort [Unknown]
  - Balance disorder [Unknown]
  - Vision blurred [Unknown]
  - Headache [Unknown]
  - Product dose omission issue [Unknown]
  - Eye disorder [Unknown]
  - Catheterisation cardiac [Unknown]
  - Loss of personal independence in daily activities [Unknown]

NARRATIVE: CASE EVENT DATE: 20200302
